FAERS Safety Report 6854056-7 (Version None)
Quarter: 2010Q3

REPORT INFORMATION
  Report Type: 
  Country: None (occurrence: None)
  Receive Date: 20100717
  Receipt Date: 20071226
  Transmission Date: 20110219
  Serious: No
  Sender: FDA-Public Use
  Company Number: US-PFIZER INC-2007108945

PATIENT
  Sex: Female
  Weight: 70.454 kg

DRUGS (4)
  1. CHANTIX [Suspect]
     Indication: SMOKING CESSATION THERAPY
     Dates: start: 20071115
  2. VYTORIN [Concomitant]
     Indication: BLOOD CHOLESTEROL INCREASED
     Dates: start: 20020101
  3. DIOVAN HCT [Concomitant]
     Indication: HYPERTENSION
     Dates: start: 20020101
  4. TOPAMAX [Concomitant]
     Indication: HEADACHE

REACTIONS (2)
  - DRUG DOSE OMISSION [None]
  - FEELING ABNORMAL [None]
